FAERS Safety Report 12965678 (Version 4)
Quarter: 2017Q1

REPORT INFORMATION
  Report Type: Spontaneous
  Country: IT (occurrence: IT)
  Receive Date: 20161122
  Receipt Date: 20170126
  Transmission Date: 20170428
  Serious: Yes (Other)
  Sender: FDA-Public Use
  Company Number: IT-BAYER-2016-221471

PATIENT
  Age: 25 Year
  Sex: Female

DRUGS (7)
  1. KLAIRA [Suspect]
     Active Substance: DIENOGEST\ETHINYL ESTRADIOL
     Dosage: UNK
     Route: 048
     Dates: start: 20161029, end: 20161029
  2. PLASIL [Suspect]
     Active Substance: METOCLOPRAMIDE HYDROCHLORIDE
     Dosage: 240 MG, ONCE
     Route: 048
     Dates: start: 20161029, end: 20161029
  3. AZITROMICINA GI SE [Suspect]
     Active Substance: AZITHROMYCIN
     Dosage: UNK
     Route: 048
     Dates: start: 20161029, end: 20161029
  4. LEVOTIROXINA [Suspect]
     Active Substance: LEVOTHYROXINE SODIUM
     Dosage: 750 ?G, ONCE
     Route: 048
     Dates: start: 20161029, end: 20161029
  5. IBUPROFENE [Suspect]
     Active Substance: IBUPROFEN
     Dosage: 2400 MG, ONCE
     Route: 048
     Dates: start: 20161029, end: 20161029
  6. LEVOFLOXACIN. [Suspect]
     Active Substance: LEVOFLOXACIN
     Dosage: 1000 MG, ONCE
     Route: 048
     Dates: start: 20161029, end: 20161029
  7. SIMETHICONE (DIMETHICONE) [Suspect]
     Active Substance: DIMETHICONE
     Dosage: DAILY DOSE 1000 MG
     Route: 048
     Dates: start: 20161029, end: 20161029

REACTIONS (3)
  - Psychomotor skills impaired [Recovering/Resolving]
  - Intentional self-injury [Recovering/Resolving]
  - Drug abuse [Recovering/Resolving]

NARRATIVE: CASE EVENT DATE: 20161029
